FAERS Safety Report 6786397-6 (Version None)
Quarter: 2010Q2

REPORT INFORMATION
  Report Type: 
  Country: None (occurrence: None)
  Receive Date: 20100623
  Receipt Date: 20100615
  Transmission Date: 20101027
  Serious: Yes (Hospitalization, Other)
  Sender: FDA-Public Use
  Company Number: US-AMGEN-QUU418586

PATIENT
  Sex: Female

DRUGS (3)
  1. NEULASTA [Suspect]
     Indication: CHEMOTHERAPY
     Route: 065
     Dates: start: 20100413, end: 20100615
  2. CYTOXAN [Concomitant]
  3. ABRAXANE [Concomitant]

REACTIONS (4)
  - ANGIOEDEMA [None]
  - PRURITUS [None]
  - URTICARIA [None]
  - WHITE BLOOD CELL COUNT INCREASED [None]
